FAERS Safety Report 10553169 (Version 16)
Quarter: 2015Q2

REPORT INFORMATION
  Report Type: Report from Study
  Country: CA (occurrence: CA)
  Receive Date: 20141030
  Receipt Date: 20150508
  Transmission Date: 20150821
  Serious: Yes (Life-Threatening, Hospitalization, Other)
  Sender: FDA-Public Use
  Company Number: CA-ROCHE-1443302

PATIENT
  Age: 45 Year
  Sex: Male
  Weight: 93 kg

DRUGS (19)
  1. PANTOPRAZOLE [Concomitant]
     Active Substance: PANTOPRAZOLE SODIUM
  2. LAMOTRIGINE. [Concomitant]
     Active Substance: LAMOTRIGINE
  3. CARBOPLATIN. [Suspect]
     Active Substance: CARBOPLATIN
     Indication: PRODUCT USED FOR UNKNOWN INDICATION
     Route: 065
     Dates: start: 20141114, end: 201503
  4. CALCAREA PHOSPHORICA [Concomitant]
  5. AVASTIN [Suspect]
     Active Substance: BEVACIZUMAB
     Indication: GLIOBLASTOMA MULTIFORME
     Route: 042
     Dates: start: 20140721
  6. FISH OIL [Concomitant]
     Active Substance: FISH OIL
  7. KEPPRA [Concomitant]
     Active Substance: LEVETIRACETAM
     Route: 065
     Dates: start: 20141017
  8. AVASTIN [Suspect]
     Active Substance: BEVACIZUMAB
     Dosage: FREQUENCY UNKNOWN
     Route: 042
     Dates: start: 20140801
  9. AVASTIN [Suspect]
     Active Substance: BEVACIZUMAB
     Dosage: LAST INFUSION DATE
     Route: 042
     Dates: start: 20141009
  10. AVASTIN [Suspect]
     Active Substance: BEVACIZUMAB
     Dosage: FREQUENCY UNKNOWN
     Route: 042
     Dates: start: 20150102
  11. NALTREXONE [Concomitant]
     Active Substance: NALTREXONE
     Dosage: START DATE 18/JUL.
     Route: 065
  12. BOSWELLIA [Concomitant]
  13. AVASTIN [Suspect]
     Active Substance: BEVACIZUMAB
     Route: 042
     Dates: start: 20150223, end: 20150310
  14. VENLAFAXINE [Concomitant]
     Active Substance: VENLAFAXINE HYDROCHLORIDE
     Route: 065
  15. DEXAMETHASONE. [Concomitant]
     Active Substance: DEXAMETHASONE
  16. VENLAFAXINE [Concomitant]
     Active Substance: VENLAFAXINE HYDROCHLORIDE
     Dosage: DOSE INCREASED TO 225 MG/ DAY
     Route: 065
  17. RUTA GRAVEOLENS [Concomitant]
     Active Substance: RUTA GRAVEOLENS FLOWERING TOP
  18. ETOPOSIDE. [Concomitant]
     Active Substance: ETOPOSIDE
     Route: 065
     Dates: start: 20140918, end: 20141027
  19. LOMUSTINE. [Concomitant]
     Active Substance: LOMUSTINE
     Route: 065
     Dates: start: 20140718

REACTIONS (26)
  - Rash [Not Recovered/Not Resolved]
  - Asthenia [Recovering/Resolving]
  - Diarrhoea [Recovered/Resolved]
  - Muscular weakness [Unknown]
  - Speech disorder [Recovering/Resolving]
  - Movement disorder [Recovering/Resolving]
  - Gait disturbance [Unknown]
  - Skin abrasion [Unknown]
  - Disease progression [Unknown]
  - Weight decreased [Not Recovered/Not Resolved]
  - Depression [Not Recovered/Not Resolved]
  - Haemoglobin decreased [Unknown]
  - Neoplasm recurrence [Not Recovered/Not Resolved]
  - Pulmonary embolism [Unknown]
  - Mobility decreased [Unknown]
  - Drug effect incomplete [Unknown]
  - Vomiting [Recovered/Resolved]
  - Heart rate increased [Unknown]
  - Infusion related reaction [Unknown]
  - Drug ineffective [Unknown]
  - Hallucination [Unknown]
  - Balance disorder [Recovering/Resolving]
  - Dyspnoea [Recovered/Resolved]
  - Seizure [Unknown]
  - Hemiparesis [Recovering/Resolving]
  - Scab [Recovering/Resolving]

NARRATIVE: CASE EVENT DATE: 201408
